FAERS Safety Report 9204163 (Version 2)
Quarter: 2013Q2

REPORT INFORMATION
  Report Type: Report from Study
  Country: DE (occurrence: DE)
  Receive Date: 20130402
  Receipt Date: 20130502
  Transmission Date: 20140414
  Serious: Yes (Hospitalization, Other)
  Sender: FDA-Public Use
  Company Number: DE-UCBSA-081660

PATIENT
  Age: 25 Year
  Sex: Male

DRUGS (10)
  1. VIMPAT [Suspect]
     Indication: EPILEPSY
     Dosage: STARTING DOSE 50 MG/DAY
     Dates: start: 20101102
  2. VIMPAT [Suspect]
     Indication: EPILEPSY
     Dosage: DOSE AT VISIT 300 MG/DAY
     Dates: end: 20110325
  3. VALPROATE [Concomitant]
     Indication: EPILEPSY
     Dosage: DOSE 2000 MG/DAY
  4. VALPROATE [Concomitant]
     Indication: EPILEPSY
     Dosage: DOSE REDUCED TO 1500 MG/DAY
  5. LAMOTRIGINE [Concomitant]
     Indication: EPILEPSY
     Dosage: DOSE 250 MG/DAY
  6. LAMOTRIGINE [Concomitant]
     Indication: EPILEPSY
     Dosage: DOSE REDUCED TO 200 MG/DAY
  7. SULTHIAME [Concomitant]
     Indication: EPILEPSY
     Dosage: DOSE 1200 MG/DAY
  8. ZONISAMIDE [Concomitant]
     Indication: EPILEPSY
     Dosage: DOSE: 250 MG/DAY
  9. BROMIDE [Concomitant]
     Indication: EPILEPSY
     Dosage: DOSE: 2550 MG/DAY
  10. ETHOSUXIMIDE [Concomitant]
     Indication: EPILEPSY
     Dosage: DOSE  1000 MG/DAY.

REACTIONS (3)
  - Epilepsy [Unknown]
  - Grand mal convulsion [Unknown]
  - Drug ineffective [Recovered/Resolved]
